FAERS Safety Report 9109162 (Version 1)
Quarter: 2013Q1

REPORT INFORMATION
  Report Type: Spontaneous
  Country: IT (occurrence: IT)
  Receive Date: 20130222
  Receipt Date: 20130222
  Transmission Date: 20140127
  Serious: Yes (Other)
  Sender: FDA-Public Use
  Company Number: IT-GLAXOSMITHKLINE-B0869647A

PATIENT
  Age: 65 Year
  Sex: Female

DRUGS (3)
  1. ALIFLUS [Suspect]
     Indication: PRODUCT USED FOR UNKNOWN INDICATION
     Dosage: 1PUFF THREE TIMES PER DAY
     Route: 055
     Dates: start: 20130204, end: 20130209
  2. BETOPTIC [Concomitant]
     Route: 047
  3. FUROSEMIDE [Concomitant]
     Dosage: 25MG PER DAY
     Route: 048

REACTIONS (4)
  - Hypertensive crisis [Recovering/Resolving]
  - Head discomfort [Recovering/Resolving]
  - Muscular weakness [Recovering/Resolving]
  - Asthenia [Recovering/Resolving]
